FAERS Safety Report 4421018-9 (Version None)
Quarter: 2004Q3

REPORT INFORMATION
  Report Type: 
  Country: None (occurrence: None)
  Receive Date: 20040809
  Receipt Date: 20040727
  Transmission Date: 20050211
  Serious: Yes (Hospitalization)
  Sender: FDA-Public Use
  Company Number: SE-GLAXOSMITHKLINE-B0340855A

PATIENT
  Age: 29 Year
  Sex: Female

DRUGS (1)
  1. LAMICTAL [Suspect]
     Indication: EPILEPSY
     Dosage: 25MG PER DAY
     Route: 048
     Dates: start: 20040618, end: 20040624

REACTIONS (8)
  - AURICULAR SWELLING [None]
  - ERYTHEMA [None]
  - EYE REDNESS [None]
  - EYE SWELLING [None]
  - PYREXIA [None]
  - RASH [None]
  - RASH GENERALISED [None]
  - TOXIC EPIDERMAL NECROLYSIS [None]
